FAERS Safety Report 25475878 (Version 1)
Quarter: 2025Q2

REPORT INFORMATION
  Report Type: Spontaneous
  Country: US (occurrence: US)
  Receive Date: 20250625
  Receipt Date: 20250625
  Transmission Date: 20250717
  Serious: No
  Sender: TORRENT PHARMA INC.
  Company Number: US-TORRENT-00014374

PATIENT
  Age: 31 Year
  Sex: Male
  Weight: 209 kg

DRUGS (1)
  1. VENXXIVA [Suspect]
     Active Substance: TIOPRONIN
     Indication: Cystinuria
     Dosage: FOUR TIMES DAILY, 300 MG IN THE MORNING, 300MG IN THE AFTERNOON, AND 600 MG AT NIGHT
     Route: 048
     Dates: start: 20250517

REACTIONS (2)
  - Cystinuria [Recovered/Resolved]
  - Nausea [Recovered/Resolved]

NARRATIVE: CASE EVENT DATE: 20250517
